FAERS Safety Report 13926792 (Version 1)
Quarter: 2017Q3

REPORT INFORMATION
  Report Type: Spontaneous
  Country: US (occurrence: US)
  Receive Date: 20170901
  Receipt Date: 20170901
  Transmission Date: 20171127
  Serious: Yes (Other)
  Sender: FDA-Public Use
  Company Number: US-ASTRAZENECA-2017SE88512

PATIENT
  Sex: Female
  Weight: 56.7 kg

DRUGS (2)
  1. SYMBICORT [Suspect]
     Active Substance: BUDESONIDE\FORMOTEROL FUMARATE DIHYDRATE
     Indication: EXPOSURE TO UNSPECIFIED AGENT
     Dosage: 160/4.5MCG TWO INHALATIONS AS REQUIRED AS REQUIRED
     Route: 055
  2. TUMS [Concomitant]
     Active Substance: CALCIUM CARBONATE
     Indication: VOMITING
     Dosage: AS REQUIRED
     Route: 048

REACTIONS (6)
  - Product use issue [Unknown]
  - Off label use [Unknown]
  - Hypersensitivity [Unknown]
  - Anaphylactic shock [Unknown]
  - Vomiting [Unknown]
  - Dyspnoea [Unknown]
